FAERS Safety Report 5053729-9 (Version None)
Quarter: 2006Q3

REPORT INFORMATION
  Report Type: 
  Country: None (occurrence: None)
  Receive Date: 20060718
  Receipt Date: 20060623
  Transmission Date: 20061208
  Serious: Yes (Hospitalization)
  Sender: FDA-Public Use
  Company Number: IT-AMGEN-UK184232

PATIENT
  Age: 37 Year
  Sex: Female

DRUGS (2)
  1. NEUPOGEN [Suspect]
     Indication: CHEMOTHERAPY
     Route: 058
     Dates: start: 20060428, end: 20060608
  2. EPIRUBICIN [Concomitant]
     Route: 065
     Dates: start: 20060427, end: 20060608

REACTIONS (1)
  - ANAEMIA [None]
